FAERS Safety Report 8481780-5 (Version None)
Quarter: 2012Q3

REPORT INFORMATION
  Report Type: 
  Country: None (occurrence: None)
  Receive Date: 20120702
  Receipt Date: 20120618
  Transmission Date: 20120928
  Serious: Yes (Hospitalization)
  Sender: FDA-Public Use
  Company Number: US-ROCHE-1062932

PATIENT
  Sex: Female
  Weight: 120.58 kg

DRUGS (11)
  1. PALONOSETRON [Concomitant]
     Route: 042
  2. RANITIDINE [Concomitant]
     Route: 042
  3. PACLITAXEL [Suspect]
     Indication: OVARIAN CANCER
     Dates: start: 20120229, end: 20120411
  4. AVASTIN [Suspect]
     Indication: OVARIAN CANCER
     Dates: start: 20120229, end: 20120321
  5. COLACE [Concomitant]
     Dates: start: 20120216
  6. DEXAMETHASONE [Concomitant]
  7. CARBOPLATIN [Suspect]
     Dosage: DOSE: 5 AUC
     Dates: start: 20120321, end: 20120411
  8. CARBOPLATIN [Suspect]
     Indication: OVARIAN CANCER
     Dosage: DOSE: 6 AUC
     Dates: start: 20120229, end: 20120411
  9. LOVENOX [Concomitant]
     Route: 058
     Dates: start: 20120216
  10. BENADRYL [Concomitant]
     Route: 042
  11. REGLAN [Concomitant]
     Route: 048
     Dates: start: 20120306

REACTIONS (12)
  - CONSTIPATION [None]
  - NEUTROPHIL COUNT [None]
  - PLATELET COUNT DECREASED [None]
  - NAUSEA [None]
  - ASTHENIA [None]
  - DECREASED APPETITE [None]
  - HYPOKALAEMIA [None]
  - VOMITING [None]
  - HAEMOGLOBIN DECREASED [None]
  - FATIGUE [None]
  - ANAEMIA [None]
  - HYPERSENSITIVITY [None]
